FAERS Safety Report 5011399-X (Version None)
Quarter: 2006Q2

REPORT INFORMATION
  Report Type: 
  Country: None (occurrence: None)
  Receive Date: 20060404
  Receipt Date: 20060112
  Transmission Date: 20061013
  Serious: No
  Sender: FDA-Public Use
  Company Number: US200601001901

PATIENT
  Age: 56 Year
  Sex: Female

DRUGS (10)
  1. CYMBALTA [Suspect]
     Dosage: 30 MG, DAILY (1/D); SEE MAGE
     Dates: start: 20050501
  2. CYMBALTA [Suspect]
     Dosage: 30 MG, DAILY (1/D); SEE MAGE
     Dates: start: 20050501
  3. CLONAZEPAM [Concomitant]
  4. SINGULAIR [Concomitant]
  5. PROTONIX [Concomitant]
  6. ESTRADIOL [Concomitant]
  7. ZOCOR [Concomitant]
  8. LISINOPRIL [Concomitant]
  9. CONCERTA [Concomitant]
  10. ESZOPICLONE (ESZOPICLONE) [Concomitant]

REACTIONS (3)
  - ABDOMINAL PAIN UPPER [None]
  - HYPERCHLORHYDRIA [None]
  - STOMACH DISCOMFORT [None]
